FAERS Safety Report 8573698-4 (Version None)
Quarter: 2012Q3

REPORT INFORMATION
  Report Type: 
  Country: None (occurrence: None)
  Receive Date: 20120806
  Receipt Date: 20120531
  Transmission Date: 20120928
  Serious: Yes (Other)
  Sender: FDA-Public Use
  Company Number: US-GLAXOSMITHKLINE-A0980371A

PATIENT
  Age: 60 Year
  Sex: Female

DRUGS (1)
  1. TYKERB [Suspect]
     Indication: BREAST CANCER
     Dosage: 1250MGD PER DAY
     Route: 048

REACTIONS (3)
  - ADVERSE DRUG REACTION [None]
  - PALMAR-PLANTAR ERYTHRODYSAESTHESIA SYNDROME [None]
  - SKIN EXFOLIATION [None]
